FAERS Safety Report 11567901 (Version 1)
Quarter: 2015Q3

REPORT INFORMATION
  Report Type: Spontaneous
  Country: US (occurrence: US)
  Receive Date: 20150916
  Receipt Date: 20150916
  Transmission Date: 20151125
  Serious: No
  Sender: FDA-Public Use
  Company Number: US-ELI_LILLY_AND_COMPANY-US200908000877

PATIENT
  Age: 79 Year
  Sex: Female

DRUGS (3)
  1. FORTEO [Suspect]
     Active Substance: TERIPARATIDE
     Dates: start: 200904
  2. DILANTIN [Concomitant]
     Active Substance: PHENYTOIN
  3. SERTRALINE [Concomitant]
     Active Substance: SERTRALINE HYDROCHLORIDE

REACTIONS (4)
  - Feeling hot [Unknown]
  - Feeling abnormal [Unknown]
  - Asthenia [Unknown]
  - Crying [Unknown]

NARRATIVE: CASE EVENT DATE: 200904
